FAERS Safety Report 7368573-7 (Version None)
Quarter: 2011Q1

REPORT INFORMATION
  Report Type: 
  Country: None (occurrence: None)
  Receive Date: 20110323
  Receipt Date: 20110315
  Transmission Date: 20110831
  Serious: Yes (Hospitalization, Other)
  Sender: FDA-Public Use
  Company Number: IT-JNJFOC-20110307838

PATIENT
  Age: 80 Year
  Sex: Male

DRUGS (10)
  1. LEVOFLOXACIN [Suspect]
     Indication: BRONCHOPNEUMONIA
     Route: 042
  2. PIPERACILLIN/TAZOBACTAM [Concomitant]
     Indication: PRODUCT USED FOR UNKNOWN INDICATION
     Route: 042
  3. DOPAMINE [Concomitant]
     Indication: PRODUCT USED FOR UNKNOWN INDICATION
     Dosage: 5 U/KG/MIN
     Route: 065
  4. HEPARIN [Concomitant]
     Dosage: 800 IU/HOUR
     Route: 065
  5. DOBUTAMINE [Concomitant]
     Indication: PRODUCT USED FOR UNKNOWN INDICATION
     Dosage: 5 U/KG/MIN
     Route: 065
  6. HEPARIN [Concomitant]
     Indication: PRODUCT USED FOR UNKNOWN INDICATION
     Dosage: BLOUS
     Route: 065
  7. CLOPIDOGREL [Concomitant]
     Indication: THROMBOSIS PROPHYLAXIS
     Route: 048
  8. FUROSEMIDE [Concomitant]
     Indication: PRODUCT USED FOR UNKNOWN INDICATION
     Dosage: BOKUS OF 125 MG THRICE
     Route: 065
  9. ASPIRIN [Concomitant]
     Indication: THROMBOSIS PROPHYLAXIS
     Route: 048
  10. FUROSEMIDE [Concomitant]
     Dosage: 0.5 MG/KG/MIN
     Route: 065

REACTIONS (5)
  - ELECTROCARDIOGRAM QT PROLONGED [None]
  - LOSS OF CONSCIOUSNESS [None]
  - PULSE ABSENT [None]
  - INCORRECT DOSE ADMINISTERED [None]
  - TORSADE DE POINTES [None]
